FAERS Safety Report 23763645 (Version 2)
Quarter: 2024Q2

REPORT INFORMATION
  Report Type: Spontaneous
  Country: US (occurrence: US)
  Receive Date: 20240419
  Receipt Date: 20240625
  Transmission Date: 20240716
  Serious: No
  Sender: FDA-Public Use
  Company Number: US-Calliditas-2024CAL00591

PATIENT
  Age: 53 Year
  Sex: Male
  Weight: 87.8 kg

DRUGS (1)
  1. TARPEYO [Suspect]
     Active Substance: BUDESONIDE
     Indication: IgA nephropathy
     Dosage: 16MG (4MG CAPSULES) ONCE DAILY
     Route: 048
     Dates: start: 20240326

REACTIONS (3)
  - Dry mouth [Unknown]
  - Blood pressure increased [Unknown]
  - Sinus disorder [Unknown]
